FAERS Safety Report 10044393 (Version 2)
Quarter: 2014Q2

REPORT INFORMATION
  Report Type: Spontaneous
  Country: US (occurrence: US)
  Receive Date: 20140328
  Receipt Date: 20140617
  Transmission Date: 20141212
  Serious: Yes (Other)
  Sender: FDA-Public Use
  Company Number: US-BAYER-2014-046992

PATIENT
  Age: 42 Year
  Sex: Female

DRUGS (8)
  1. MIRENA [Suspect]
     Indication: CONTRACEPTION
     Dosage: 20 MCG/24HR, CONT
     Route: 015
  2. MIRENA [Suspect]
     Indication: MENORRHAGIA
     Dosage: 20 MCG/24HR, CONT
     Route: 015
     Dates: start: 20131217
  3. FUROSEMIDE [Concomitant]
  4. METOPROLOL TARTRATE [Concomitant]
  5. ALLOPURINOL [Concomitant]
  6. SPIRONOLACTONE [Concomitant]
  7. NIFEDIPINE [Concomitant]
  8. BENAZEPRIL [Concomitant]

REACTIONS (6)
  - Genital haemorrhage [None]
  - Menstrual disorder [None]
  - Device expulsion [None]
  - Abdominal pain lower [Recovering/Resolving]
  - Pelvic pain [Recovering/Resolving]
  - Device dislocation [None]
